FAERS Safety Report 20508485 (Version 1)
Quarter: 2022Q1

REPORT INFORMATION
  Report Type: Spontaneous
  Country: CN (occurrence: CN)
  Receive Date: 20220223
  Receipt Date: 20220223
  Transmission Date: 20220424
  Serious: Yes (Other)
  Sender: FDA-Public Use
  Company Number: CN-BAYER-2022A027503

PATIENT
  Age: 65 Year
  Sex: Male
  Weight: 70 kg

DRUGS (5)
  1. AVELOX [Suspect]
     Active Substance: MOXIFLOXACIN HYDROCHLORIDE
     Indication: Pneumonia
     Dosage: 0.4 G, QD
     Route: 041
     Dates: start: 20220205, end: 20220208
  2. SULPERAZONE [Concomitant]
     Active Substance: CEFOPERAZONE SODIUM\SULBACTAM SODIUM
     Indication: Anti-infective therapy
     Dosage: 2 G, TID
     Dates: start: 20220124, end: 20220204
  3. VORICONAZOLE [Concomitant]
     Active Substance: VORICONAZOLE
     Indication: Anti-infective therapy
     Dosage: 0.2 G, QD
     Dates: start: 20220124, end: 20220204
  4. DIFLUCAN [Concomitant]
     Active Substance: FLUCONAZOLE
     Indication: Anti-infective therapy
     Dosage: 0.2 G, QD
     Route: 041
     Dates: start: 20220205, end: 20220208
  5. PIPERACILLIN AND TAZOBACTAM [Concomitant]
     Active Substance: PIPERACILLIN SODIUM\TAZOBACTAM SODIUM
     Indication: Anti-infective therapy
     Dosage: 4.5 G, QD
     Route: 041
     Dates: start: 20220205, end: 20220208

REACTIONS (2)
  - Coma [None]
  - Prothrombin time prolonged [Recovering/Resolving]

NARRATIVE: CASE EVENT DATE: 20220208
